FAERS Safety Report 6199585-7 (Version None)
Quarter: 2009Q2

REPORT INFORMATION
  Report Type: 
  Country: None (occurrence: None)
  Receive Date: 20090522
  Receipt Date: 20090515
  Transmission Date: 20091009
  Serious: Yes (Other)
  Sender: FDA-Public Use
  Company Number: B0574873A

PATIENT
  Sex: Male

DRUGS (6)
  1. CLAVAMOX [Suspect]
     Indication: RHINITIS
     Dosage: .75G TWICE PER DAY
     Route: 048
     Dates: start: 20090330, end: 20090331
  2. CLAVAMOX [Suspect]
  3. BIOFERMIN R [Concomitant]
     Route: 048
  4. POLARAMINE [Concomitant]
     Route: 048
  5. ASVERIN [Concomitant]
     Route: 048
  6. MUCODYNE [Concomitant]
     Route: 048

REACTIONS (1)
  - ENTEROCOLITIS HAEMORRHAGIC [None]
